FAERS Safety Report 18661367 (Version 1)
Quarter: 2020Q4

REPORT INFORMATION
  Report Type: Spontaneous
  Country: US (occurrence: US)
  Receive Date: 20201224
  Receipt Date: 20201224
  Transmission Date: 20210114
  Serious: No
  Sender: FDA-Public Use
  Company Number: US-ELI_LILLY_AND_COMPANY-US202012001554

PATIENT
  Sex: Female

DRUGS (3)
  1. PREDNISONE. [Suspect]
     Active Substance: PREDNISONE
     Indication: PNEUMONIA
     Dosage: UNK, UNKNOWN
     Route: 065
  2. BASAGLAR [Suspect]
     Active Substance: INSULIN GLARGINE
     Indication: TYPE 2 DIABETES MELLITUS
     Dosage: 40 U, DAILY
     Route: 058
  3. AMARYL [Concomitant]
     Active Substance: GLIMEPIRIDE
     Indication: TYPE 2 DIABETES MELLITUS
     Dosage: 5 MG, DAILY

REACTIONS (7)
  - Blood glucose increased [Unknown]
  - Illness [Unknown]
  - Pneumonia [Unknown]
  - Rib fracture [Recovering/Resolving]
  - Fall [Unknown]
  - Meniscus injury [Not Recovered/Not Resolved]
  - Limb discomfort [Recovering/Resolving]
